FAERS Safety Report 4904730-4 (Version None)
Quarter: 2006Q1

REPORT INFORMATION
  Report Type: 
  Country: None (occurrence: None)
  Receive Date: 20060208
  Receipt Date: 20050926
  Transmission Date: 20060701
  Serious: No
  Sender: FDA-Public Use
  Company Number: US-GLAXOSMITHKLINE-A0575927A

PATIENT
  Age: 46 Year
  Sex: Male

DRUGS (6)
  1. PAROXETINE HCL [Suspect]
     Indication: PANIC DISORDER
     Dosage: 60MG PER DAY
     Route: 048
  2. PAXIL CR [Suspect]
     Indication: PANIC DISORDER
     Dosage: 75MG PER DAY
     Route: 048
  3. PAXIL [Suspect]
     Indication: PANIC DISORDER
     Dosage: 60MG PER DAY
     Route: 048
  4. ATIVAN [Concomitant]
  5. SYNTHROID [Concomitant]
  6. ANTIVERT [Concomitant]

REACTIONS (5)
  - DRUG INEFFECTIVE [None]
  - EMOTIONAL DISORDER [None]
  - HEADACHE [None]
  - NAUSEA [None]
  - PANIC ATTACK [None]
